FAERS Safety Report 5252973-5 (Version None)
Quarter: 2007Q1

REPORT INFORMATION
  Report Type: 
  Country: None (occurrence: None)
  Receive Date: 20070301
  Receipt Date: 20070220
  Transmission Date: 20070707
  Serious: Yes (Hospitalization, Other)
  Sender: FDA-Public Use
  Company Number: HQWYE383024JAN07

PATIENT
  Sex: Female
  Weight: 75.75 kg

DRUGS (7)
  1. TRIQUILAR-28 [Suspect]
     Indication: ORAL CONTRACEPTION
     Route: 048
     Dates: start: 20061104, end: 20070101
  2. SOLANAX [Concomitant]
  3. KAMISHOUYOUSAN [Concomitant]
  4. HORIZON [Concomitant]
  5. DIAMOX #1 [Concomitant]
  6. RITALIN [Concomitant]
  7. TRYPTANOL [Concomitant]

REACTIONS (3)
  - ABASIA [None]
  - DEEP VEIN THROMBOSIS [None]
  - PULMONARY THROMBOSIS [None]
